FAERS Safety Report 16808549 (Version 1)
Quarter: 2019Q3

REPORT INFORMATION
  Report Type: Spontaneous
  Country: US (occurrence: US)
  Receive Date: 20190916
  Receipt Date: 20190916
  Transmission Date: 20191005
  Serious: Yes (Other)
  Sender: FDA-Public Use
  Company Number: US-AUROBINDO-AUR-APU-2018-056448

PATIENT
  Age: 62 Year
  Sex: Male
  Weight: 68.04 kg

DRUGS (1)
  1. DEXTROMETHORPHAN+GUAIFENESIN 20/200MG/10ML [Suspect]
     Active Substance: DEXTROMETHORPHAN HYDROBROMIDE\GUAIFENESIN
     Indication: NASOPHARYNGITIS
     Dosage: 10 MILLILITER, EVERY 4 HOURS
     Route: 065
     Dates: start: 20181113, end: 20181116

REACTIONS (3)
  - Hypertension [Recovered/Resolved]
  - Constipation [Recovered/Resolved]
  - Urinary retention [Recovered/Resolved]
